FAERS Safety Report 8428358-7 (Version None)
Quarter: 2012Q2

REPORT INFORMATION
  Report Type: 
  Country: None (occurrence: None)
  Receive Date: 20120612
  Receipt Date: 20120529
  Transmission Date: 20120825
  Serious: Yes (Other)
  Sender: FDA-Public Use
  Company Number: US-PAR PHARMACEUTICAL, INC-2012SCPR004420

PATIENT

DRUGS (1)
  1. HYDROXYUREA [Suspect]
     Indication: POLYCYTHAEMIA VERA
     Dosage: UNK, UNKNOWN
     Route: 065

REACTIONS (6)
  - SQUAMOUS CELL CARCINOMA [None]
  - VENOUS INSUFFICIENCY [None]
  - IMPAIRED HEALING [None]
  - SKIN ULCER [None]
  - BASAL CELL CARCINOMA [None]
  - STAPHYLOCOCCAL INFECTION [None]
